FAERS Safety Report 15349786 (Version 2)
Quarter: 2018Q3

REPORT INFORMATION
  Report Type: Report from Study
  Country: US (occurrence: US)
  Receive Date: 20180904
  Receipt Date: 20180917
  Transmission Date: 20181010
  Serious: Yes (Other)
  Sender: FDA-Public Use
  Company Number: US-JAZZ-2018-US-011041

PATIENT
  Age: 51 Year
  Sex: Male

DRUGS (14)
  1. SEROQUEL [Suspect]
     Active Substance: QUETIAPINE FUMARATE
     Indication: ANXIETY
  2. ABILIFY [Concomitant]
     Active Substance: ARIPIPRAZOLE
  3. ZOLPIDEM TARTRATE. [Concomitant]
     Active Substance: ZOLPIDEM TARTRATE
  4. ADDERALL [Concomitant]
     Active Substance: AMPHETAMINE ASPARTATE\AMPHETAMINE SULFATE\DEXTROAMPHETAMINE SACCHARATE\DEXTROAMPHETAMINE SULFATE
  5. XANAX [Suspect]
     Active Substance: ALPRAZOLAM
     Indication: ANXIETY
  6. HYDROXYZINE HCL [Concomitant]
     Active Substance: HYDROXYZINE HYDROCHLORIDE
  7. XYREM [Suspect]
     Active Substance: SODIUM OXYBATE
     Indication: CATAPLEXY
  8. FLUOXETINE HCL [Concomitant]
     Active Substance: FLUOXETINE HYDROCHLORIDE
  9. BACLOFEN. [Concomitant]
     Active Substance: BACLOFEN
  10. XYREM [Suspect]
     Active Substance: SODIUM OXYBATE
     Indication: NARCOLEPSY
     Dosage: 2 G, BID
     Route: 048
     Dates: start: 201807
  11. TEMAZEPAM. [Concomitant]
     Active Substance: TEMAZEPAM
  12. CLONAZEPAM. [Concomitant]
     Active Substance: CLONAZEPAM
  13. PRAZOSIN. [Concomitant]
     Active Substance: PRAZOSIN
  14. WELCHOL [Concomitant]
     Active Substance: COLESEVELAM HYDROCHLORIDE

REACTIONS (21)
  - Nightmare [Not Recovered/Not Resolved]
  - Dizziness [Unknown]
  - Wrong technique in product usage process [Unknown]
  - Tongue discomfort [Unknown]
  - Initial insomnia [Unknown]
  - Anxiety [Not Recovered/Not Resolved]
  - Sleep apnoea syndrome [Not Recovered/Not Resolved]
  - Haemorrhoids [Not Recovered/Not Resolved]
  - Hypoaesthesia oral [Recovered/Resolved]
  - Cholecystectomy [Unknown]
  - Heart rate increased [Not Recovered/Not Resolved]
  - Fatigue [Not Recovered/Not Resolved]
  - Diarrhoea [Not Recovered/Not Resolved]
  - Blood pressure increased [Not Recovered/Not Resolved]
  - Irritability [Not Recovered/Not Resolved]
  - Panic attack [Unknown]
  - Basal cell carcinoma [Not Recovered/Not Resolved]
  - Pruritus [Unknown]
  - Paraesthesia oral [Recovered/Resolved]
  - Hyperhidrosis [Not Recovered/Not Resolved]
  - Abdominal pain upper [Unknown]

NARRATIVE: CASE EVENT DATE: 2018
